FAERS Safety Report 9668239 (Version 2)
Quarter: 2014Q1

REPORT INFORMATION
  Report Type: Spontaneous
  Country: US (occurrence: US)
  Receive Date: 20131104
  Receipt Date: 20140127
  Transmission Date: 20141002
  Serious: No
  Sender: FDA-Public Use
  Company Number: US-009507513-1310USA014434

PATIENT
  Age: 61 Year
  Sex: Female

DRUGS (9)
  1. OXYTROL FOR WOMEN [Suspect]
     Indication: ENURESIS
     Dosage: 1 DF, Q4D
     Route: 062
     Dates: start: 20131009
  2. NOVOLOG [Concomitant]
     Indication: DIABETES MELLITUS
     Dosage: UNK, UNKNOWN
  3. LANTUS [Concomitant]
     Indication: DIABETES MELLITUS
     Dosage: UNK, UNKNOWN
  4. XANAX [Concomitant]
     Indication: DEPRESSION
     Dosage: UNK, UNKNOWN
  5. ZOLOFT [Concomitant]
     Indication: DEPRESSION
     Dosage: UNK, UNKNOWN
  6. ZOLOFT [Concomitant]
     Indication: ANXIETY
  7. ZOCOR [Concomitant]
     Indication: BLOOD CHOLESTEROL
     Dosage: UNK, UNKNOWN
  8. REMERON [Concomitant]
     Indication: ANXIETY
     Dosage: UNK, UNKNOWN
  9. RESTASIS [Concomitant]
     Indication: EYE DISORDER
     Dosage: UNK, UNKNOWN

REACTIONS (2)
  - Urinary incontinence [Recovered/Resolved]
  - Drug ineffective [Unknown]
